FAERS Safety Report 4302552-9 (Version None)
Quarter: 2004Q1

REPORT INFORMATION
  Report Type: 
  Country: None (occurrence: None)
  Receive Date: 20040217
  Receipt Date: 20030319
  Transmission Date: 20041129
  Serious: Yes (Life-Threatening, Hospitalization)
  Sender: FDA-Public Use
  Company Number: 2003152241US

PATIENT
  Age: 26 Year
  Sex: Female

DRUGS (1)
  1. CYTOTEC [Suspect]
     Indication: INDUCED LABOUR
     Dosage: VAGINAL
     Route: 067
     Dates: start: 20021101

REACTIONS (1)
  - AMNIOTIC FLUID EMBOLUS [None]
